FAERS Safety Report 19507102 (Version 1)
Quarter: 2021Q3

REPORT INFORMATION
  Report Type: Spontaneous
  Country: NL (occurrence: FR)
  Receive Date: 20210708
  Receipt Date: 20210708
  Transmission Date: 20211014
  Serious: Yes (Other)
  Sender: FDA-Public Use
  Company Number: FR-FRESENIUS KABI-FK202106648

PATIENT
  Age: 58 Year
  Sex: Male
  Weight: 85 kg

DRUGS (12)
  1. FLUDROCORTISONE ACETATE. [Suspect]
     Active Substance: FLUDROCORTISONE ACETATE
     Indication: PRODUCT USED FOR UNKNOWN INDICATION
     Dosage: 50 MG, BATCH/LOT NO.: REPORTED AS {UNKNOWN}
     Route: 048
     Dates: start: 20210410, end: 20210416
  2. INSULIN [Suspect]
     Active Substance: INSULIN NOS
     Indication: DIABETES MELLITUS
     Dosage: UNK, BATCH/LOT NO.: REPORTED AS {UNKNOWN}
     Route: 065
     Dates: start: 20210410
  3. LINEZOLID (MANUFACTURER UNKNOWN) [Suspect]
     Active Substance: LINEZOLID
     Indication: LUNG DISORDER
     Dosage: 2 DF ONCE DAILY, BATCH/LOT NO.: REPORTED AS {UNKNOWN}
     Route: 065
     Dates: start: 20210415, end: 20210422
  4. ENOXAPARIN SODIUM. [Suspect]
     Active Substance: ENOXAPARIN SODIUM
     Indication: THROMBOSIS PROPHYLAXIS
     Dosage: 4000 IU / 24 H, BATCH/LOT NO.: REPORTED AS {INC}
     Route: 059
     Dates: start: 20210411
  5. MIDAZOLAM. [Suspect]
     Active Substance: MIDAZOLAM
     Indication: SEDATIVE THERAPY
     Dosage: UNK, BATCH/LOT NO.: REPORTED AS {UNKNOWN}
     Route: 042
     Dates: start: 20210411, end: 20210518
  6. NOREPINEPHRINE. [Suspect]
     Active Substance: NOREPINEPHRINE
     Indication: PRODUCT USED FOR UNKNOWN INDICATION
     Dosage: 40 MG ONCE DAILY, BATCH/LOT NO.: REPORTED AS {UNKNOWN}
     Route: 065
     Dates: start: 20210410, end: 20210429
  7. SUFENTANIL [Suspect]
     Active Substance: SUFENTANIL
     Indication: SEDATIVE THERAPY
     Dosage: 250 MG / 24 H, BATCH/LOT NO.: REPORTED AS {UNKNOWN}
     Route: 065
     Dates: start: 20210414, end: 20210417
  8. PANTOPRAZOLE SODIUM SESQUIHYDRATE [Suspect]
     Active Substance: PANTOPRAZOLE SODIUM
     Indication: GASTRITIS PROPHYLAXIS
     Dosage: 40 MG ONCE DAILY, BATCH/LOT NO.: REPORTED AS {UNKNOWN}
     Route: 065
     Dates: start: 20210410, end: 20210511
  9. MEROPENEM TRIHYDRATE [Suspect]
     Active Substance: MEROPENEM
     Indication: LUNG DISORDER
     Dosage: UNK, BATCH/LOT NO.: REPORTED AS {UNKNOWN}
     Route: 065
     Dates: start: 20210415, end: 20210418
  10. LACTULOSE. [Suspect]
     Active Substance: LACTULOSE
     Indication: CONSTIPATION
     Dosage: 3 DF ONCE DAILY, BATCH/LOT NO.: REPORTED AS {UNKNOWN}
     Route: 065
     Dates: start: 20210414, end: 20210509
  11. MAGNESIUM GLYCEROPHOSPHATE/SODIUM PHOSPHATE DIBASIC/PHOSPHORIC ACID/CALCIUM PHOSPHATE MONOBASIC [Suspect]
     Active Substance: CALCIUM PHOSPHATE, MONOBASIC, ANHYDROUS\MAGNESIUM GLYCEROPHOSPHATE\PHOSPHORIC ACID\SODIUM PHOSPHATE, DIBASIC
     Indication: BLOOD PHOSPHORUS
     Dosage: 26 DF, BATCH/LOT NO.: REPORTED AS {INC}
     Route: 065
     Dates: start: 20210413
  12. TERBUTALINE SULFATE. [Concomitant]
     Active Substance: TERBUTALINE SULFATE
     Indication: PRODUCT USED FOR UNKNOWN INDICATION
     Dosage: UNKNOWN

REACTIONS (1)
  - Cholestasis [Not Recovered/Not Resolved]

NARRATIVE: CASE EVENT DATE: 20210418
